FAERS Safety Report 4436756-1 (Version None)
Quarter: 2004Q3

REPORT INFORMATION
  Report Type: 
  Country: None (occurrence: None)
  Receive Date: 20040728
  Receipt Date: 20030717
  Transmission Date: 20050211
  Serious: Yes (Hospitalization)
  Sender: FDA-Public Use
  Company Number: 201603

PATIENT
  Age: 77 Year
  Sex: Female

DRUGS (5)
  1. RITUXAN [Suspect]
     Indication: NON-HODGKIN'S LYMPHOMA
     Dosage: 590 MG, SINGLE, INTRAVENOUS
     Route: 042
     Dates: start: 20030708, end: 20030708
  2. CELEBREX [Concomitant]
  3. DETROL XL (TOLTERODINE TARTRATE) [Concomitant]
  4. TYLENOL [Concomitant]
  5. BENADRYL (DIPHENDHYDRAMINE HYDROCHLORIDE) [Concomitant]

REACTIONS (2)
  - CHEST PAIN [None]
  - DYSPNOEA [None]
